FAERS Safety Report 7463265-8 (Version None)
Quarter: 2011Q2

REPORT INFORMATION
  Report Type: 
  Country: None (occurrence: None)
  Receive Date: 20110506
  Receipt Date: 20110427
  Transmission Date: 20111010
  Serious: Yes (Death, Other)
  Sender: FDA-Public Use
  Company Number: US-CELGENEUS-163-21880-11043610

PATIENT
  Age: 64 Year
  Sex: Male

DRUGS (17)
  1. REVLIMID [Suspect]
     Indication: MULTIPLE MYELOMA
     Dosage: 5 MILLIGRAM
     Route: 048
     Dates: start: 20060701
  2. SCOPOLAMINE [Concomitant]
     Route: 065
  3. SIMVASTATIN [Concomitant]
     Route: 065
  4. GABAPENTIN [Concomitant]
     Route: 065
  5. REVLIMID [Suspect]
     Dosage: 5 MILLIGRAM
     Route: 048
     Dates: start: 20071001
  6. REVLIMID [Suspect]
     Dosage: 25 MILLIGRAM
     Route: 048
     Dates: start: 20080301, end: 20081201
  7. MEGESTROL ACETATE [Concomitant]
     Route: 065
  8. REVLIMID [Suspect]
     Dosage: 10 MILLIGRAM
     Route: 048
     Dates: start: 20100201, end: 20100701
  9. MELPHALAN [Concomitant]
     Indication: MULTIPLE MYELOMA
     Route: 065
     Dates: start: 20100401, end: 20100501
  10. DEXAMETHASONE [Concomitant]
     Indication: MULTIPLE MYELOMA
     Route: 065
     Dates: start: 20080301
  11. ONDANSETRON [Concomitant]
     Route: 065
  12. OMEPRAZOLE [Concomitant]
     Route: 065
  13. MORPHINE [Concomitant]
     Route: 065
  14. VELCADE [Concomitant]
     Route: 065
  15. CYCLOPHOSPHAMIDE [Concomitant]
     Route: 065
  16. LORAZEPAM [Concomitant]
     Route: 065
  17. EPOETIN [Concomitant]
     Route: 065

REACTIONS (4)
  - THROMBOCYTOPENIA [None]
  - DEATH [None]
  - RENAL IMPAIRMENT [None]
  - MULTIPLE MYELOMA [None]
